FAERS Safety Report 23814922 (Version 1)
Quarter: 2024Q2

REPORT INFORMATION
  Report Type: Report from Study
  Country: US (occurrence: None)
  Receive Date: 20240503
  Receipt Date: 20240503
  Transmission Date: 20240716
  Serious: Yes (Other)
  Sender: FDA-Public Use
  Company Number: 2024A104053

PATIENT
  Sex: Female

DRUGS (26)
  1. FASENRA [Suspect]
     Active Substance: BENRALIZUMAB
     Indication: Vocal cord disorder
     Route: 058
  2. ADVAIR DISKU [Concomitant]
  3. ALBUTEROL [Concomitant]
     Active Substance: ALBUTEROL
  4. ALLOPURINOL [Concomitant]
     Active Substance: ALLOPURINOL
  5. COENZYME Q10 [Concomitant]
     Active Substance: DIETARY SUPPLEMENT\UBIDECARENONE
  6. DICLOFENAC [Concomitant]
     Active Substance: DICLOFENAC
  7. DILTIAZEM [Concomitant]
     Active Substance: DILTIAZEM
  8. EPINEPHRINE [Concomitant]
     Active Substance: EPINEPHRINE
  9. FEXOFENADINE [Concomitant]
     Active Substance: FEXOFENADINE HYDROCHLORIDE
  10. FLONASE [Concomitant]
     Active Substance: FLUTICASONE PROPIONATE
  11. FUROSEMIDE [Concomitant]
     Active Substance: FUROSEMIDE
  12. GABAPENTIN [Concomitant]
     Active Substance: GABAPENTIN
  13. INVOKANA [Concomitant]
     Active Substance: CANAGLIFLOZIN
  14. KRILL OIL [Concomitant]
     Active Substance: DIETARY SUPPLEMENT\KRILL OIL
  15. LEVOTHYROXINE [Concomitant]
     Active Substance: LEVOTHYROXINE\LEVOTHYROXINE SODIUM
  16. LEXAPRO [Concomitant]
     Active Substance: ESCITALOPRAM OXALATE
  17. MECLIZINE HC [Concomitant]
  18. MEMANTINE [Concomitant]
     Active Substance: MEMANTINE
  19. METFORMIN [Concomitant]
     Active Substance: METFORMIN HYDROCHLORIDE
  20. METOCLOPRAMI [Concomitant]
  21. MIRAPEX ER [Concomitant]
     Active Substance: PRAMIPEXOLE DIHYDROCHLORIDE
  22. VITAMINS [Concomitant]
     Active Substance: VITAMINS
  23. MYRBETRIQ [Concomitant]
     Active Substance: MIRABEGRON
  24. PANTOPRAZOLE [Concomitant]
     Active Substance: PANTOPRAZOLE
  25. SPIRIVA [Concomitant]
     Active Substance: TIOTROPIUM BROMIDE MONOHYDRATE
  26. WARFARIN [Concomitant]
     Active Substance: WARFARIN

REACTIONS (4)
  - Pneumonia [Not Recovered/Not Resolved]
  - Dyspnoea [Not Recovered/Not Resolved]
  - Indifference [Not Recovered/Not Resolved]
  - Sinusitis [Not Recovered/Not Resolved]
